FAERS Safety Report 6050250-6 (Version None)
Quarter: 2009Q1

REPORT INFORMATION
  Report Type: 
  Country: None (occurrence: None)
  Receive Date: 20090116
  Receipt Date: 20090108
  Transmission Date: 20090719
  Serious: Yes (Other)
  Sender: FDA-Public Use
  Company Number: KV200801392

PATIENT
  Age: 56 Year
  Sex: Female

DRUGS (11)
  1. ISOSORBIDE MONONITRATE [Suspect]
     Indication: ANGINA PECTORIS
     Dosage: 30 MG, QD, ORAL
     Route: 048
     Dates: start: 20030101
  2. NOVOLOG [Concomitant]
  3. LANTUS [Concomitant]
  4. METFORMIN HCL [Concomitant]
  5. METOPROLOL TARTRATE [Concomitant]
  6. CLONIDINE HCL (CLONIDINE HYDROCHLORIDE) [Concomitant]
  7. COZAAR [Concomitant]
  8. NEXIUM [Concomitant]
  9. AMLODIPINE [Concomitant]
  10. METOLAZONE [Concomitant]
  11. ASPIRIN [Concomitant]

REACTIONS (7)
  - CONFUSIONAL STATE [None]
  - DIZZINESS [None]
  - DYSPNOEA [None]
  - FOOT AMPUTATION [None]
  - HEADACHE [None]
  - PRODUCT QUALITY ISSUE [None]
  - SLEEP APNOEA SYNDROME [None]
